FAERS Safety Report 6869764-1 (Version None)
Quarter: 2010Q3

REPORT INFORMATION
  Report Type: 
  Country: None (occurrence: None)
  Receive Date: 20100722
  Receipt Date: 20080903
  Transmission Date: 20110219
  Serious: Yes (Other)
  Sender: FDA-Public Use
  Company Number: US-PFIZER INC-2008066935

PATIENT
  Sex: Female
  Weight: 76.2 kg

DRUGS (4)
  1. CHANTIX [Suspect]
     Indication: SMOKING CESSATION THERAPY
     Route: 048
     Dates: start: 20080601, end: 20080801
  2. DRUG USED IN DIABETES [Concomitant]
     Indication: DIABETES MELLITUS
  3. ALL OTHER THERAPEUTIC PRODUCTS [Concomitant]
     Indication: CARDIAC DISORDER
  4. CARDIAC THERAPY [Concomitant]

REACTIONS (3)
  - DIABETES MELLITUS [None]
  - FATIGUE [None]
  - NAUSEA [None]
